FAERS Safety Report 4607357-7 (Version None)
Quarter: 2005Q1

REPORT INFORMATION
  Report Type: 
  Country: None (occurrence: None)
  Receive Date: 20050311
  Receipt Date: 20050311
  Transmission Date: 20050727
  Serious: Yes (Hospitalization)
  Sender: FDA-Public Use
  Company Number: None

PATIENT
  Age: 78 Year
  Sex: Male
  Weight: 95.2554 kg

DRUGS (2)
  1. OXYCODONE HCL [Suspect]
     Indication: PAIN
     Dosage: 10 MG Q 4 H PO PRN
     Route: 048
     Dates: start: 20041001, end: 20041006
  2. MORPHINE [Suspect]
     Indication: PAIN
     Dosage: PCA
     Dates: start: 20040930, end: 20041003

REACTIONS (3)
  - COLONIC PSEUDO-OBSTRUCTION [None]
  - CONSTIPATION [None]
  - HYPOKALAEMIA [None]
